FAERS Safety Report 21255264 (Version 2)
Quarter: 2022Q3

REPORT INFORMATION
  Report Type: Spontaneous
  Country: US (occurrence: US)
  Receive Date: 20220825
  Receipt Date: 20220905
  Transmission Date: 20221027
  Serious: Yes (Other)
  Sender: FDA-Public Use
  Company Number: US-009507513-2208USA007711

PATIENT
  Sex: Female

DRUGS (2)
  1. KEYTRUDA [Suspect]
     Active Substance: PEMBROLIZUMAB
     Indication: Lung cancer metastatic
     Dosage: 200MG EVERY 3 WEEKS
     Route: 042
     Dates: start: 20220728
  2. KEYTRUDA [Suspect]
     Active Substance: PEMBROLIZUMAB
     Dosage: 200MG EVERY 3 WEEKS
     Route: 042
     Dates: start: 20220818

REACTIONS (5)
  - Cerebrovascular accident [Unknown]
  - Transfusion reaction [Unknown]
  - Anal incontinence [Unknown]
  - Wheezing [Unknown]
  - Chills [Unknown]

NARRATIVE: CASE EVENT DATE: 20220728
